FAERS Safety Report 13627113 (Version 1)
Quarter: 2017Q2

REPORT INFORMATION
  Report Type: Spontaneous
  Country: DE (occurrence: DE)
  Receive Date: 20170607
  Receipt Date: 20170607
  Transmission Date: 20170830
  Serious: Yes (Other)
  Sender: FDA-Public Use
  Company Number: DE-MYLANLABS-2017M1033322

PATIENT

DRUGS (5)
  1. ESCITALOPRAM [Suspect]
     Active Substance: ESCITALOPRAM OXALATE
     Dosage: SEIT WOCHEN
     Route: 048
     Dates: end: 20161113
  2. RISPERIDON [Concomitant]
     Active Substance: RISPERIDONE
     Route: 048
     Dates: start: 20161118, end: 20161128
  3. ESCITALOPRAM [Suspect]
     Active Substance: ESCITALOPRAM OXALATE
     Dosage: 10 MG, UNK
     Route: 048
     Dates: start: 20161212, end: 20161214
  4. L-THYROXIN [Concomitant]
     Active Substance: LEVOTHYROXINE SODIUM
     Dosage: SEIT JAHREN
     Route: 048
  5. ESCITALOPRAM [Suspect]
     Active Substance: ESCITALOPRAM OXALATE
     Dosage: 20 MG, UNK
     Route: 048
     Dates: start: 20161114, end: 20161211

REACTIONS (6)
  - Haemorrhagic disorder [Recovered/Resolved]
  - Menstrual disorder [Recovered/Resolved]
  - Anxiety [Recovered/Resolved]
  - Tension [Recovered/Resolved]
  - Haematoma [Recovered/Resolved]
  - Loss of personal independence in daily activities [Recovered/Resolved]

NARRATIVE: CASE EVENT DATE: 20161114
